FAERS Safety Report 10860915 (Version 1)
Quarter: 2015Q1

REPORT INFORMATION
  Report Type: Spontaneous
  Country: US (occurrence: US)
  Receive Date: 20150224
  Receipt Date: 20150224
  Transmission Date: 20150721
  Serious: Yes (Hospitalization)
  Sender: FDA-Public Use
  Company Number: US-ASTRAZENECA-2015SE15760

PATIENT
  Age: 59 Year
  Sex: Female
  Weight: 55.3 kg

DRUGS (6)
  1. TOPROL XL [Suspect]
     Active Substance: METOPROLOL SUCCINATE
     Indication: SUPRAVENTRICULAR TACHYCARDIA
     Route: 048
     Dates: start: 2005
  2. LEVAQUIN [Suspect]
     Active Substance: LEVOFLOXACIN
  3. CELEXA  (CITALOPRAM) [Concomitant]
     Indication: STRESS
     Route: 048
  4. Z-PACK [Suspect]
     Active Substance: AZITHROMYCIN DIHYDRATE
     Route: 065
  5. BIAXIN [Suspect]
     Active Substance: CLARITHROMYCIN
     Route: 065
  6. XANAX [Concomitant]
     Active Substance: ALPRAZOLAM
     Indication: STRESS
     Route: 048

REACTIONS (5)
  - Product use issue [Unknown]
  - Pneumonia [Recovered/Resolved]
  - Gastrointestinal disorder [Unknown]
  - Drug hypersensitivity [Recovered/Resolved]
  - Contrast media allergy [Recovered/Resolved]

NARRATIVE: CASE EVENT DATE: 2005
